FAERS Safety Report 6573598-5 (Version None)
Quarter: 2010Q1

REPORT INFORMATION
  Report Type: 
  Country: None (occurrence: None)
  Receive Date: 20100204
  Receipt Date: 20100204
  Transmission Date: 20100710
  Serious: No
  Sender: FDA-Public Use
  Company Number: None

PATIENT
  Age: 61 Year
  Sex: Female
  Weight: 100 kg

DRUGS (1)
  1. VENOFER [Suspect]
     Indication: MICROCYTIC ANAEMIA
     Dosage: 200 MG DAILY IV
     Route: 042
     Dates: start: 20100128, end: 20100201

REACTIONS (1)
  - INFUSION SITE EXTRAVASATION [None]
